FAERS Safety Report 12114824 (Version 2)
Quarter: 2016Q2

REPORT INFORMATION
  Report Type: Spontaneous
  Country: FR (occurrence: FR)
  Receive Date: 20160225
  Receipt Date: 20160517
  Transmission Date: 20160815
  Serious: Yes (Hospitalization)
  Sender: FDA-Public Use
  Company Number: FR-CONCORDIA PHARMACEUTICALS INC.-CO-UX-FR-2016-008

PATIENT
  Age: 88 Year
  Sex: Female

DRUGS (8)
  1. CARDENSIEL [Suspect]
     Active Substance: BISOPROLOL FUMARATE
     Indication: PRODUCT USED FOR UNKNOWN INDICATION
     Route: 048
     Dates: start: 20160108, end: 20160115
  2. UROXATRAL [Suspect]
     Active Substance: ALFUZOSIN HYDROCHLORIDE
     Indication: PRODUCT USED FOR UNKNOWN INDICATION
     Route: 048
     Dates: start: 20160114, end: 20160125
  3. SECTRAL [Concomitant]
     Active Substance: ACEBUTOLOL HYDROCHLORIDE
     Dates: end: 20160108
  4. AUGMENTIN [Concomitant]
     Active Substance: AMOXICILLIN\CLAVULANATE POTASSIUM
     Dates: start: 20160101, end: 20160118
  5. ROVAMYCINE [Concomitant]
     Active Substance: SPIRAMYCIN
     Dates: start: 20160106, end: 20160118
  6. LOVENOX [Concomitant]
     Active Substance: ENOXAPARIN SODIUM
     Dates: start: 201601
  7. LASILIX [Concomitant]
     Active Substance: FUROSEMIDE
  8. LEVOTHYROX [Concomitant]
     Active Substance: LEVOTHYROXINE

REACTIONS (2)
  - Off label use [Unknown]
  - Agranulocytosis [Recovered/Resolved]

NARRATIVE: CASE EVENT DATE: 20160114
